FAERS Safety Report 13088402 (Version 1)
Quarter: 2017Q1

REPORT INFORMATION
  Report Type: Spontaneous
  Country: US (occurrence: US)
  Receive Date: 20170104
  Receipt Date: 20170104
  Transmission Date: 20170428
  Serious: No
  Sender: FDA-Public Use
  Company Number: None

PATIENT
  Age: 65 Year
  Sex: Female
  Weight: 66.15 kg

DRUGS (4)
  1. NEUPRO [Concomitant]
     Active Substance: ROTIGOTINE
  2. LEVOTHYROXINE. [Concomitant]
     Active Substance: LEVOTHYROXINE
  3. BOTOX [Suspect]
     Active Substance: ONABOTULINUMTOXINA
     Indication: SKIN COSMETIC PROCEDURE
     Dosage: OTHER FREQUENCY:3-6 MONTH SPAN; SUBCUTANEOUS?
     Route: 058
     Dates: start: 20160921, end: 20160921
  4. CRESTOR [Concomitant]
     Active Substance: ROSUVASTATIN CALCIUM

REACTIONS (4)
  - Drug interaction [None]
  - Restless legs syndrome [None]
  - Condition aggravated [None]
  - Therapeutic response decreased [None]

NARRATIVE: CASE EVENT DATE: 20160923
